FAERS Safety Report 11953295 (Version 1)
Quarter: 2016Q1

REPORT INFORMATION
  Report Type: Spontaneous
  Country: US (occurrence: US)
  Receive Date: 20160126
  Receipt Date: 20160126
  Transmission Date: 20160526
  Serious: No
  Sender: FDA-Public Use
  Company Number: US-DEXPHARM-20152326

PATIENT
  Age: 66 Year
  Sex: Female
  Weight: 92.97 kg

DRUGS (3)
  1. OMEPRAZOLE DELAYED RELEASE [Suspect]
     Active Substance: OMEPRAZOLE
     Indication: NAUSEA
     Dosage: 20 MG, QD
     Route: 048
     Dates: start: 201509
  2. ZOMIG [Concomitant]
     Active Substance: ZOLMITRIPTAN
     Indication: MIGRAINE
     Dosage: UNK
     Route: 048
  3. GAVISCON [Suspect]
     Active Substance: ALUMINUM HYDROXIDE\MAGNESIUM CARBONATE
     Indication: NAUSEA
     Dosage: 2 CHEWABLE TABLETS, AFTER EVERY MEAL
     Route: 048
     Dates: start: 20151002, end: 20151015

REACTIONS (3)
  - Drug interaction [Unknown]
  - Bowel movement irregularity [Recovering/Resolving]
  - Migraine [Not Recovered/Not Resolved]

NARRATIVE: CASE EVENT DATE: 201510
